FAERS Safety Report 8124162-8 (Version None)
Quarter: 2012Q1

REPORT INFORMATION
  Report Type: 
  Country: None (occurrence: None)
  Receive Date: 20120209
  Receipt Date: 20120203
  Transmission Date: 20120608
  Serious: Yes (Hospitalization)
  Sender: FDA-Public Use
  Company Number: FI-B.I. PHARMACEUTICALS,INC./RIDGEFIELD-2012-SW-00078SF

PATIENT
  Sex: Female
  Weight: 68 kg

DRUGS (4)
  1. THYROXIN [Concomitant]
     Indication: HYPOTHYROIDISM
     Dosage: 0.05 MG
  2. PARA-TABS [Concomitant]
     Indication: PROCEDURAL PAIN
     Dosage: 1-3 TABL/DAY
     Dates: start: 20111003, end: 20111012
  3. PRADAXA [Suspect]
     Indication: THROMBOSIS PROPHYLAXIS
     Dosage: 220 MG
     Dates: start: 20111004, end: 20111012
  4. ARCOXIA [Concomitant]
     Indication: PROCEDURAL PAIN
     Dosage: 90 MG
     Dates: start: 20111003, end: 20111012

REACTIONS (3)
  - ABDOMINAL PAIN [None]
  - HAEMATOMA [None]
  - PYREXIA [None]
